FAERS Safety Report 4866777-6 (Version None)
Quarter: 2005Q4

REPORT INFORMATION
  Report Type: 
  Country: None (occurrence: None)
  Receive Date: 20051221
  Receipt Date: 20051205
  Transmission Date: 20060501
  Serious: Yes (Life-Threatening, Hospitalization, Disabling)
  Sender: FDA-Public Use
  Company Number: 2005BI021694

PATIENT
  Age: 63 Year
  Sex: Female
  Weight: 89 kg

DRUGS (12)
  1. ZEVALIN [Suspect]
     Indication: NON-HODGKIN'S LYMPHOMA
     Dosage: 174.1 MBQ; 1X; IV
     Route: 042
     Dates: end: 20030101
  2. ZEVALIN [Suspect]
     Indication: NON-HODGKIN'S LYMPHOMA
     Dosage: 1209 MBQ; 1X; IV
     Route: 042
     Dates: start: 20031120, end: 20031120
  3. RITUXIMAB [Concomitant]
  4. RITUXIMAB [Concomitant]
  5. LEVOTHYROXINE SODIUM [Concomitant]
  6. INSULIN [Concomitant]
  7. PARACETAMOL [Concomitant]
  8. METFORMIN [Concomitant]
  9. CYCLOPHOSPHAMIDE W/VINCRISTINE/PREDNISONE [Concomitant]
  10. DEXCHLORPHENIRAMINE [Concomitant]
  11. ONDANSETRON [Concomitant]
  12. METRONIDAZOLE [Concomitant]

REACTIONS (6)
  - ACUTE MYELOID LEUKAEMIA [None]
  - BONE MARROW FAILURE [None]
  - DIVERTICULUM INTESTINAL [None]
  - HAEMATURIA [None]
  - HYPERSENSITIVITY [None]
  - OEDEMA [None]
